FAERS Safety Report 9858399 (Version 1)
Quarter: 2014Q1

REPORT INFORMATION
  Report Type: Spontaneous
  Country: US (occurrence: None)
  Receive Date: 20140129
  Receipt Date: 20140129
  Transmission Date: 20141002
  Serious: Yes (Hospitalization)
  Sender: FDA-Public Use
  Company Number: None

PATIENT
  Age: 66 Year
  Sex: Male
  Weight: 59.09 kg

DRUGS (2)
  1. BEVACIZUMAB (RHUMAB VEGF) (704865) [Suspect]
  2. PEMETREXED (ALIMTA; LY231514) [Suspect]

REACTIONS (5)
  - Bacterial infection [None]
  - Pneumonia [None]
  - Immunosuppression [None]
  - Haemoptysis [None]
  - Fungal infection [None]
